FAERS Safety Report 7237832-0 (Version None)
Quarter: 2011Q1

REPORT INFORMATION
  Report Type: 
  Country: None (occurrence: None)
  Receive Date: 20110121
  Receipt Date: 20110111
  Transmission Date: 20110831
  Serious: Yes (Congenital Anomaly)
  Sender: FDA-Public Use
  Company Number: US-MYLANLABS-2010S1019100

PATIENT

DRUGS (3)
  1. DARUNAVIR [Suspect]
     Route: 064
  2. RALTEGRAVIR [Suspect]
     Route: 064
  3. ZIDOVUDINE [Suspect]
     Route: 064

REACTIONS (2)
  - DRUG EXPOSURE DURING PREGNANCY [None]
  - CONGENITAL ANOMALY [None]
